FAERS Safety Report 21901649 (Version 1)
Quarter: 2023Q1

REPORT INFORMATION
  Report Type: Spontaneous
  Country: US (occurrence: US)
  Receive Date: 20230124
  Receipt Date: 20230124
  Transmission Date: 20230418
  Serious: No
  Sender: FDA-Public Use
  Company Number: US-ELI_LILLY_AND_COMPANY-US202212013914

PATIENT
  Age: 46 Year
  Sex: Male

DRUGS (1)
  1. MOUNJARO [Suspect]
     Active Substance: TIRZEPATIDE
     Indication: Weight decreased
     Dosage: 10 MG, UNKNOWN
     Route: 058
     Dates: start: 202209

REACTIONS (7)
  - COVID-19 [Unknown]
  - Product dose omission issue [Unknown]
  - Blood pressure decreased [Unknown]
  - Off label use [Unknown]
  - Injection site pain [Unknown]
  - Eructation [Unknown]
  - Decreased appetite [Unknown]

NARRATIVE: CASE EVENT DATE: 20220901
